FAERS Safety Report 6641397-1 (Version None)
Quarter: 2010Q1

REPORT INFORMATION
  Report Type: 
  Country: None (occurrence: None)
  Receive Date: 20100318
  Receipt Date: 20100312
  Transmission Date: 20100710
  Serious: Yes (Hospitalization)
  Sender: FDA-Public Use
  Company Number: CZ-ROCHE-690967

PATIENT
  Sex: Female

DRUGS (13)
  1. METHOXY POLYETHYLENE GLYCOL-EPOETIN BETA [Suspect]
     Dosage: LAST DOSE PRIOR TO SAE: 22 FEB 2010. FORM: PER PNOPORONOL
     Route: 042
     Dates: start: 20090921
  2. B COMPLEX FORTE [Concomitant]
     Dosage: FREQUENCY 1-1-0
  3. CELASKON [Concomitant]
     Dosage: FREQUENCY 1-0-0
  4. VITAR SODA [Concomitant]
     Dosage: FREQUENCY 2-2-2
  5. BETALOC [Concomitant]
     Dosage: FREQUENCY 1-0-0, DRUG AS BETALOC SR200 MG TAB
  6. FURORESE [Concomitant]
     Dosage: FREQUENCY 1-1-1 FURORESE 250MG
  7. TICLOPIDINE HCL [Concomitant]
     Dosage: FREQUENCY1-0-1: TICLOPIDINE 250 MG
  8. APO-OME [Concomitant]
     Dosage: FREQUENCY 1-0-1: APO-OME 20 MG
  9. PENTOMER [Concomitant]
     Dosage: FREQUENCY1-0-1: PENTOMER RET 400 MG
  10. ATROVENT [Concomitant]
     Dosage: FREQUENCY 2X2VDECHY: ATROVENT N INH
  11. ROCALTROL [Concomitant]
  12. CA CARBONATE [Concomitant]
     Dosage: FREQUENCY 2-2-2: CA-CARBONICUM 0.5 MG
  13. ASCORUTIN [Concomitant]
     Dosage: FREQUECU 1-1-1

REACTIONS (1)
  - WOUND [None]
